FAERS Safety Report 4617571-2 (Version None)
Quarter: 2005Q1

REPORT INFORMATION
  Report Type: 
  Country: None (occurrence: None)
  Receive Date: 20050315
  Receipt Date: 20050303
  Transmission Date: 20050727
  Serious: Yes (Other)
  Sender: FDA-Public Use
  Company Number: 200410468BBE

PATIENT
  Sex: Male

DRUGS (10)
  1. HYPRHO-D [Suspect]
  2. INJECTABLE GLOBULIN (JOHNSON AND JOHNSON) (IMMUNOGLOBULIN HUMAN NORMAL [Suspect]
  3. INJECTABLE GLOBULIN (ORTHOCLININCAL DIAGNOSTICS) (IMMUNOGLOBULIN HUMAN [Suspect]
  4. INJECTABLE GLOBULIN (AVENTIS PASTEUR INC) (IMMUNOGLOBULIN HUMAN NORMAL [Suspect]
  5. INJECTABLE GLOBULIN (DOW AGRO SCIENCES) (IMMUNOGLOBULIN HUMAN NORMAL) [Suspect]
  6. INJECTABLE GLOBULIN (DOW CHEMICAL COMPANY) (IMMUNOGLOBULIN HUMAN NORMA [Suspect]
  7. INJECTABLE GLOBULIN (ELI LILLY) (IMMUNOGLOBULIN HUMAN NORMAL) [Suspect]
  8. INJECTABLE GLOBULIN (GLAXOSMITHKLINE) (IMMUNOGLOBULIN HUMAN NORMAL) [Suspect]
  9. INJECTABLE GLOBULIN (MERCK) (IMMUNOGLOBULIN HUMAN NORMAL) [Suspect]
  10. INJECTABLE GLOBULIN (WYETH) (IIMMUNOGLOBULIN HUMAN NORMAL) [Suspect]

REACTIONS (2)
  - METAL POISONING [None]
  - NEUROTOXICITY [None]
